FAERS Safety Report 22287721 (Version 2)
Quarter: 2023Q2

REPORT INFORMATION
  Report Type: Report from Study
  Country: CA (occurrence: None)
  Receive Date: 20230505
  Receipt Date: 20230529
  Transmission Date: 20230721
  Serious: Yes (Other)
  Sender: FDA-Public Use
  Company Number: CA-PFIZER INC-202300176347

PATIENT
  Age: 13 Year
  Sex: Female
  Weight: 35 kg

DRUGS (13)
  1. METHOTREXATE [Suspect]
     Active Substance: METHOTREXATE
     Indication: Product used for unknown indication
     Route: 065
  2. RENFLEXIS [Suspect]
     Active Substance: INFLIXIMAB-ABDA
     Indication: Crohn^s disease
     Route: 065
  3. RENFLEXIS [Suspect]
     Active Substance: INFLIXIMAB-ABDA
     Route: 042
  4. RENFLEXIS [Suspect]
     Active Substance: INFLIXIMAB-ABDA
     Route: 042
  5. RENFLEXIS [Suspect]
     Active Substance: INFLIXIMAB-ABDA
     Route: 065
  6. RENFLEXIS [Suspect]
     Active Substance: INFLIXIMAB-ABDA
     Route: 065
  7. RENFLEXIS [Suspect]
     Active Substance: INFLIXIMAB-ABDA
     Route: 065
  8. RENFLEXIS [Suspect]
     Active Substance: INFLIXIMAB-ABDA
     Route: 065
  9. RENFLEXIS [Suspect]
     Active Substance: INFLIXIMAB-ABDA
     Route: 065
  10. RENFLEXIS [Suspect]
     Active Substance: INFLIXIMAB-ABDA
     Route: 065
  11. RENFLEXIS [Suspect]
     Active Substance: INFLIXIMAB-ABDA
     Route: 065
  12. RENFLEXIS [Suspect]
     Active Substance: INFLIXIMAB-ABDA
     Route: 042
  13. RENFLEXIS [Suspect]
     Active Substance: INFLIXIMAB-ABDA
     Route: 065

REACTIONS (11)
  - Product use issue [Recovered/Resolved]
  - Blood pressure increased [Recovered/Resolved]
  - Body temperature abnormal [Recovered/Resolved]
  - COVID-19 [Recovered/Resolved]
  - Discomfort [Recovered/Resolved]
  - Ear pain [Recovered/Resolved]
  - Haematochezia [Recovered/Resolved]
  - Heart rate irregular [Recovered/Resolved]
  - Oxygen saturation abnormal [Recovered/Resolved]
  - Poor venous access [Recovered/Resolved]
  - Acne [Recovered/Resolved]
